FAERS Safety Report 24558149 (Version 2)
Quarter: 2024Q4

REPORT INFORMATION
  Report Type: Spontaneous
  Country: US (occurrence: US)
  Receive Date: 20241028
  Receipt Date: 20241105
  Transmission Date: 20250114
  Serious: No
  Sender: LEO PHARM
  Company Number: US-LEO Pharma-374507

PATIENT
  Age: 43 Year
  Sex: Female

DRUGS (1)
  1. ADBRY [Suspect]
     Active Substance: TRALOKINUMAB-LDRM
     Indication: Dermatitis atopic
     Route: 058
     Dates: start: 202406

REACTIONS (5)
  - Injection site pain [Unknown]
  - Injection site reaction [Unknown]
  - Injection site urticaria [Unknown]
  - Injection site rash [Unknown]
  - Injection site pruritus [Unknown]
